FAERS Safety Report 12785583 (Version 1)
Quarter: 2016Q3

REPORT INFORMATION
  Report Type: Spontaneous
  Country: US (occurrence: US)
  Receive Date: 20160927
  Receipt Date: 20160927
  Transmission Date: 20161109
  Serious: Yes (Death)
  Sender: FDA-Public Use
  Company Number: US-PFIZER INC-2016444271

PATIENT
  Age: 74 Year
  Sex: Female

DRUGS (3)
  1. CIPROFLOXACIN. [Suspect]
     Active Substance: CIPROFLOXACIN
     Indication: OROPHARYNGEAL PAIN
     Dosage: UNK
  2. GENTAMYCIN [Suspect]
     Active Substance: GENTAMICIN
     Indication: OROPHARYNGEAL PAIN
     Dosage: UNK
  3. VANCOMYCIN HCL [Suspect]
     Active Substance: VANCOMYCIN HYDROCHLORIDE
     Indication: OROPHARYNGEAL PAIN
     Dosage: UNK

REACTIONS (1)
  - Drug ineffective [Fatal]
